FAERS Safety Report 5851962-7 (Version None)
Quarter: 2008Q3

REPORT INFORMATION
  Report Type: 
  Country: None (occurrence: None)
  Receive Date: 20080820
  Receipt Date: 20080808
  Transmission Date: 20090109
  Serious: Yes (Other)
  Sender: FDA-Public Use
  Company Number: GB-PFIZER INC-2008060867

PATIENT
  Age: 27 Year
  Sex: Male

DRUGS (2)
  1. VIBRAMYCIN [Suspect]
     Route: 048
  2. CANNABIS [Concomitant]

REACTIONS (1)
  - POLYMYOSITIS [None]
